FAERS Safety Report 12518258 (Version 4)
Quarter: 2016Q3

REPORT INFORMATION
  Report Type: Spontaneous
  Country: GB (occurrence: GB)
  Receive Date: 20160630
  Receipt Date: 20160906
  Transmission Date: 20161109
  Serious: Yes (Hospitalization, Other)
  Sender: FDA-Public Use
  Company Number: GB-CONCORDIA PHARMACEUTICALS INC.-GSH201601-000222

PATIENT
  Age: 67 Year
  Sex: Female
  Weight: 94 kg

DRUGS (134)
  1. PREDNISOLONE. [Suspect]
     Active Substance: PREDNISOLONE
     Indication: PLASMA CELL MYELOMA
     Dosage: DOSAGE FORM: UNSPECIFIED, CYCLE 01 PERIOD
     Route: 048
     Dates: start: 20151102, end: 20151105
  2. VELCADE [Suspect]
     Active Substance: BORTEZOMIB
     Indication: PLASMA CELL MYELOMA
     Dosage: DOSAGE FORM: LYOPHILIZED POWDER, CYCLE 01 DAY 1. LABEL IDENTIFIERS: 14463-01
     Route: 058
     Dates: start: 20151102, end: 20151102
  3. ACICLOVIR [Concomitant]
     Active Substance: ACYCLOVIR
     Indication: SEPSIS
     Route: 042
     Dates: start: 20151205, end: 20151216
  4. ACICLOVIR [Concomitant]
     Active Substance: ACYCLOVIR
     Indication: PROPHYLAXIS
     Route: 042
     Dates: start: 20151205, end: 20151216
  5. ATORVASTATIN [Concomitant]
     Active Substance: ATORVASTATIN
     Indication: BLOOD CHOLESTEROL
     Route: 048
     Dates: start: 20160205
  6. FUROSEMIDE. [Concomitant]
     Active Substance: FUROSEMIDE
     Indication: PERIPHERAL SWELLING
     Route: 048
     Dates: start: 20160129, end: 20160229
  7. INSULIN [Concomitant]
     Active Substance: INSULIN NOS
     Indication: TYPE 2 DIABETES MELLITUS
     Route: 042
  8. LEVOTHYROXINE SODIUM. [Concomitant]
     Active Substance: LEVOTHYROXINE SODIUM
     Indication: HYPOTHYROIDISM
     Route: 050
     Dates: start: 1995
  9. NORADRENALIN [Concomitant]
     Active Substance: NOREPINEPHRINE\NOREPINEPHRINE BITARTRATE
     Indication: ACUTE CORONARY SYNDROME
     Route: 042
     Dates: start: 20160204, end: 20160208
  10. SALBUTAMOL [Concomitant]
     Active Substance: ALBUTEROL
     Indication: CHRONIC OBSTRUCTIVE PULMONARY DISEASE
     Dosage: DOSAGE FORM: INHALATION
     Route: 055
  11. TEICOPLANIN [Concomitant]
     Active Substance: TEICOPLANIN
     Indication: SEPSIS
     Route: 042
     Dates: start: 20160204, end: 20160211
  12. VITAMIN B12 [Concomitant]
     Active Substance: CYANOCOBALAMIN
     Indication: MACROCYTOSIS
     Route: 042
     Dates: start: 20160201, end: 20160201
  13. PREDNISOLONE. [Suspect]
     Active Substance: PREDNISOLONE
     Indication: PLASMA CELL MYELOMA
     Dosage: DOSAGE FORM: UNSPECIFIED, CYCLE 3 PERIOD 1
     Route: 048
     Dates: start: 20160202, end: 20160204
  14. MELPHALAN [Suspect]
     Active Substance: MELPHALAN
     Indication: PLASMA CELL MYELOMA
     Dosage: DOSAGE FORM: UNSPECIFIED, CYCLE 01 PERIOD
     Route: 048
     Dates: start: 20160201, end: 20160204
  15. VELCADE [Suspect]
     Active Substance: BORTEZOMIB
     Indication: PLASMA CELL MYELOMA
     Dosage: DOSAGE FORM: LYOPHILIZED POWDER, CYCLE 01 DAY 11. LABEL IDENTIFIERS: 14463-04
     Route: 058
     Dates: start: 20151112, end: 20151112
  16. VELCADE [Suspect]
     Active Substance: BORTEZOMIB
     Indication: PLASMA CELL MYELOMA
     Dosage: DOSAGE FORM: LYOPHILIZED POWDER, CYCLE 01 DAY 25. LABEL IDENTIFIERS: 14463-06
     Route: 058
     Dates: start: 20151126, end: 20151126
  17. VELCADE [Suspect]
     Active Substance: BORTEZOMIB
     Indication: PLASMA CELL MYELOMA
     Dosage: DOSAGE FORM: LYOPHILIZED POWDER, CYCLE 02 DAY 1. LABEL IDENTIFIERS: 14463-08
     Route: 058
     Dates: start: 20151222, end: 20151222
  18. VELCADE [Suspect]
     Active Substance: BORTEZOMIB
     Indication: PLASMA CELL MYELOMA
     Dosage: DOSAGE FORM: LYOPHILIZED POWDER, CYCLE 01 DAY 22. LABEL IDENTIFIERS: 14463-05
     Route: 058
     Dates: start: 20151123, end: 20151123
  19. ACICLOVIR [Concomitant]
     Active Substance: ACYCLOVIR
     Indication: ACUTE CORONARY SYNDROME
     Route: 042
     Dates: start: 20160212
  20. ACICLOVIR [Concomitant]
     Active Substance: ACYCLOVIR
     Indication: SEPSIS
     Route: 042
     Dates: start: 20160212
  21. AMIODARONE [Concomitant]
     Active Substance: AMIODARONE
     Indication: ACUTE CORONARY SYNDROME
     Route: 042
     Dates: start: 20160207, end: 20160211
  22. ASPIRIN. [Concomitant]
     Active Substance: ASPIRIN
     Indication: ACUTE CORONARY SYNDROME
     Route: 048
     Dates: start: 20160205, end: 20160215
  23. AUGMENTIN [Concomitant]
     Active Substance: AMOXICILLIN\CLAVULANATE POTASSIUM
     Indication: LOWER RESPIRATORY TRACT INFECTION
     Dosage: DOSAGE FORM: UNSPECIFIED
     Route: 065
     Dates: start: 20151205, end: 20151210
  24. AUGMENTIN [Concomitant]
     Active Substance: AMOXICILLIN\CLAVULANATE POTASSIUM
     Indication: LOWER RESPIRATORY TRACT INFECTION
     Dosage: DOSAGE FORM: UNSPECIFIED
     Route: 065
  25. CARBOCISTEINE [Concomitant]
     Active Substance: CARBOCYSTEINE
     Indication: PROPHYLAXIS
     Route: 050
     Dates: start: 20160207, end: 20160405
  26. CLARITHROMYCIN. [Concomitant]
     Active Substance: CLARITHROMYCIN
     Indication: LOWER RESPIRATORY TRACT INFECTION
     Route: 048
     Dates: start: 20151204, end: 20151210
  27. CO-DYDRAMOL [Concomitant]
     Active Substance: ACETAMINOPHEN\DIHYDROCODEINE
     Indication: BACK PAIN
     Route: 048
     Dates: start: 20151114
  28. FILGRASTIM [Concomitant]
     Active Substance: FILGRASTIM
     Indication: NEUTROPENIA
     Dosage: DOSAGE FORM: UNSPECIFIED
     Route: 058
     Dates: start: 20151113, end: 20151118
  29. FLUCONAZOLE. [Concomitant]
     Active Substance: FLUCONAZOLE
     Indication: SEPSIS
     Route: 042
     Dates: start: 20160204, end: 20160212
  30. FOLIC ACID. [Concomitant]
     Active Substance: FOLIC ACID
     Indication: MACROCYTOSIS
     Route: 048
     Dates: start: 20160129
  31. FUROSEMIDE. [Concomitant]
     Active Substance: FUROSEMIDE
     Indication: PERIPHERAL SWELLING
     Route: 042
     Dates: start: 20160111, end: 20160111
  32. FUROSEMIDE. [Concomitant]
     Active Substance: FUROSEMIDE
     Indication: PERIPHERAL SWELLING
     Route: 048
     Dates: start: 20160112, end: 20160129
  33. HYDROCORTISONE. [Concomitant]
     Active Substance: HYDROCORTISONE
     Indication: ECZEMA
     Route: 042
     Dates: start: 20160212
  34. LEVOTHYROXINE SODIUM. [Concomitant]
     Active Substance: LEVOTHYROXINE SODIUM
     Indication: HYPOTHYROIDISM
     Route: 050
     Dates: start: 20160205
  35. LIDOCAINE. [Concomitant]
     Active Substance: LIDOCAINE
     Indication: PAIN
     Route: 061
     Dates: start: 20151216, end: 20151217
  36. ONDANSETRON [Concomitant]
     Active Substance: ONDANSETRON
     Indication: NAUSEA
     Route: 042
     Dates: start: 20151206, end: 20151210
  37. POTASSIUM CHLORIDE. [Concomitant]
     Active Substance: POTASSIUM CHLORIDE
     Indication: HYPOKALAEMIA
     Route: 042
     Dates: start: 20160215
  38. PREDNISOLONE. [Concomitant]
     Active Substance: PREDNISOLONE
     Indication: PROPHYLAXIS
     Dosage: DOSAGE FORM: UNSPECIFIED
     Route: 065
  39. PREDNISOLONE. [Suspect]
     Active Substance: PREDNISOLONE
     Indication: PLASMA CELL MYELOMA
     Dosage: DOSAGE FORM: UNSPECIFIED, CYCLE 2 PERIOD 1
     Route: 048
     Dates: start: 20151222, end: 20151224
  40. MELPHALAN [Suspect]
     Active Substance: MELPHALAN
     Indication: PLASMA CELL MYELOMA
     Dosage: DOSAGE FORM: UNSPECIFIED, CYCLE 01 PERIOD
     Route: 048
     Dates: start: 20151102, end: 20160201
  41. VELCADE [Suspect]
     Active Substance: BORTEZOMIB
     Indication: PLASMA CELL MYELOMA
     Dosage: DOSAGE FORM: LYOPHILIZED POWDER, CYCLE 2 DAY 8 LABEL IDENTIFIER V14463-10
     Route: 058
     Dates: start: 20151229, end: 20151229
  42. ACICLOVIR [Concomitant]
     Active Substance: ACYCLOVIR
     Indication: ACUTE CORONARY SYNDROME
     Route: 042
     Dates: start: 20160204, end: 20160212
  43. ATORVASTATIN [Concomitant]
     Active Substance: ATORVASTATIN
     Indication: PROPHYLAXIS
     Route: 048
     Dates: start: 2005, end: 20151207
  44. AUGMENTIN [Concomitant]
     Active Substance: AMOXICILLIN\CLAVULANATE POTASSIUM
     Indication: PROPHYLAXIS
     Dosage: DOSAGE FORM: UNSPECIFIED
     Route: 065
  45. CLOPIDOGREL [Concomitant]
     Active Substance: CLOPIDOGREL BISULFATE
     Indication: SEPSIS
     Route: 048
     Dates: start: 20160208, end: 20160211
  46. LANSOPRAZOLE. [Concomitant]
     Active Substance: LANSOPRAZOLE
     Indication: DYSPEPSIA
     Route: 050
     Dates: start: 20160204
  47. MAGNESIUM GLYCEROPHOSPHATE [Concomitant]
     Active Substance: MAGNESIUM GLYCEROPHOSPHATE
     Indication: HYPOMAGNESAEMIA
     Route: 048
     Dates: start: 20160129
  48. METFORMIN [Concomitant]
     Active Substance: METFORMIN HYDROCHLORIDE
     Indication: TYPE 2 DIABETES MELLITUS
     Route: 048
     Dates: start: 20160213
  49. MIDAZOLAM [Concomitant]
     Active Substance: MIDAZOLAM\MIDAZOLAM HYDROCHLORIDE
     Indication: PAIN IN EXTREMITY
     Route: 042
     Dates: start: 20160205
  50. SALBUTAMOL [Concomitant]
     Active Substance: ALBUTEROL
     Indication: CHRONIC OBSTRUCTIVE PULMONARY DISEASE
     Dosage: DOSAGE FORM: INHALATION
     Route: 055
     Dates: start: 20160212
  51. TAZOCIN [Concomitant]
     Active Substance: PIPERACILLIN SODIUM\TAZOBACTAM SODIUM
     Indication: SEPSIS
     Dosage: DOSAGE FORM: POWDER
     Route: 042
     Dates: start: 20160204, end: 20160208
  52. VELCADE [Suspect]
     Active Substance: BORTEZOMIB
     Indication: PLASMA CELL MYELOMA
     Dosage: DOSAGE FORM: LYOPHILIZED POWDER, CYCLE 3 DAY 1 LABEL IDENTIFIER V14464-03
     Route: 058
     Dates: start: 20160309, end: 20160309
  53. VELCADE [Suspect]
     Active Substance: BORTEZOMIB
     Indication: PLASMA CELL MYELOMA
     Dosage: DOSAGE FORM: LYOPHILIZED POWDER, CYCLE 2 DAY 29 LABEL IDENTIFIER V14464-02
     Route: 058
     Dates: start: 20160118, end: 20160118
  54. VELCADE [Suspect]
     Active Substance: BORTEZOMIB
     Indication: PLASMA CELL MYELOMA
     Dosage: DOSAGE FORM: LYOPHILIZED POWDER, CYCLE 3 DAY 1 LABEL IDENTIFIER V14464-03
     Route: 058
     Dates: start: 20160315
  55. VELCADE [Suspect]
     Active Substance: BORTEZOMIB
     Indication: PLASMA CELL MYELOMA
     Dosage: DOSAGE FORM: LYOPHILIZED POWDER, CYCLE 01 DAY 8. LABEL IDENTIFIERS: 14463-03
     Route: 058
     Dates: start: 20151109, end: 20151109
  56. ACICLOVIR [Concomitant]
     Active Substance: ACYCLOVIR
     Indication: PROPHYLAXIS
     Route: 042
     Dates: start: 20160212
  57. ACICLOVIR [Concomitant]
     Active Substance: ACYCLOVIR
     Indication: ACUTE CORONARY SYNDROME
     Route: 048
     Dates: start: 20160212
  58. AMLODIPINE [Concomitant]
     Active Substance: AMLODIPINE BESYLATE
     Indication: HYPERTENSION
     Route: 048
     Dates: start: 2005, end: 20051207
  59. AMOXICILLIN. [Concomitant]
     Active Substance: AMOXICILLIN
     Indication: LOWER RESPIRATORY TRACT INFECTION
     Route: 048
     Dates: start: 20151204, end: 20151204
  60. ASPIRIN. [Concomitant]
     Active Substance: ASPIRIN
     Indication: SEPSIS
     Route: 048
     Dates: start: 20160205, end: 20160215
  61. ATORVASTATIN [Concomitant]
     Active Substance: ATORVASTATIN
     Indication: HYPERCHOLESTEROLAEMIA
     Route: 048
     Dates: start: 20160205
  62. ATORVASTATIN [Concomitant]
     Active Substance: ATORVASTATIN
     Indication: BLOOD CHOLESTEROL
     Route: 048
     Dates: start: 2005, end: 20151207
  63. ATROVENT [Concomitant]
     Active Substance: IPRATROPIUM BROMIDE
     Indication: CHRONIC OBSTRUCTIVE PULMONARY DISEASE
     Dosage: DOSAGE FORM: INHALATION
     Route: 055
     Dates: start: 20160212
  64. BISOPROLOL [Concomitant]
     Active Substance: BISOPROLOL
     Indication: HYPERTENSION
     Dosage: DOSAGE FORM: TAPE
     Route: 048
     Dates: start: 2009, end: 20160205
  65. CEFTRIAXONE. [Concomitant]
     Active Substance: CEFTRIAXONE
     Indication: SEPSIS
     Route: 042
     Dates: start: 20160208
  66. CO-DYDRAMOL [Concomitant]
     Active Substance: ACETAMINOPHEN\DIHYDROCODEINE
     Indication: BACK PAIN
     Route: 048
     Dates: start: 20151114
  67. HYDROXOCOBALAMIN [Concomitant]
     Active Substance: HYDROXOCOBALAMIN
     Indication: PROPHYLAXIS
     Route: 042
     Dates: start: 20160201, end: 20160201
  68. LEVOTHYROXINE SODIUM. [Concomitant]
     Active Substance: LEVOTHYROXINE SODIUM
     Indication: PROPHYLAXIS
     Route: 050
     Dates: start: 20160205
  69. MAGNESIUM GLYCEROPHOSPHATE [Concomitant]
     Active Substance: MAGNESIUM GLYCEROPHOSPHATE
     Indication: PROPHYLAXIS
     Route: 048
     Dates: start: 20160129
  70. METFORMIN [Concomitant]
     Active Substance: METFORMIN HYDROCHLORIDE
     Indication: TYPE 2 DIABETES MELLITUS
     Route: 048
     Dates: start: 2011, end: 20160212
  71. SPIRONOLACTONE. [Concomitant]
     Active Substance: SPIRONOLACTONE
     Indication: ACUTE CORONARY SYNDROME
     Route: 048
     Dates: start: 20160229, end: 20160405
  72. VELCADE [Suspect]
     Active Substance: BORTEZOMIB
     Indication: PLASMA CELL MYELOMA
     Dosage: DOSAGE FORM: LYOPHILIZED POWDER, CYCLE 3 DAY 1 LABEL IDENTIFIER V14464-03
     Route: 058
     Dates: start: 20160201, end: 20160201
  73. VELCADE [Suspect]
     Active Substance: BORTEZOMIB
     Indication: PLASMA CELL MYELOMA
     Dosage: DOSAGE FORM: LYOPHILIZED POWDER, CYCLE 2 DAY 22 LABLE IDENTIFIER V14464-01
     Route: 058
     Dates: start: 20160111, end: 20160111
  74. ADCAL-D3 [Concomitant]
     Active Substance: CALCIUM CARBONATE\CHOLECALCIFEROL
     Indication: HYPOCALCAEMIA
     Route: 048
     Dates: start: 20160129
  75. CLONIDINE. [Concomitant]
     Active Substance: CLONIDINE
     Indication: HYPERTENSION
     Route: 042
  76. CO-AMOXICLAV [Concomitant]
     Active Substance: AMOXICILLIN\CLAVULANIC ACID
     Indication: UPPER RESPIRATORY TRACT INFECTION
     Route: 048
     Dates: start: 20151205, end: 20151212
  77. DOXYCYCLINE. [Concomitant]
     Active Substance: DOXYCYCLINE
     Indication: PROPHYLAXIS
     Route: 048
     Dates: start: 2011
  78. DOXYCYCLINE. [Concomitant]
     Active Substance: DOXYCYCLINE
     Indication: UPPER RESPIRATORY TRACT INFECTION
     Route: 048
     Dates: start: 2011
  79. FENTANYL. [Concomitant]
     Active Substance: FENTANYL
     Indication: PAIN IN EXTREMITY
     Route: 042
     Dates: start: 20160205
  80. FLUCONAZOLE. [Concomitant]
     Active Substance: FLUCONAZOLE
     Indication: BACK PAIN
     Route: 048
     Dates: start: 20151204
  81. FONDAPARINUX [Concomitant]
     Active Substance: FONDAPARINUX
     Indication: THROMBOSIS PROPHYLAXIS
     Route: 058
     Dates: start: 20160205, end: 20160211
  82. GLUCOSE [Concomitant]
     Active Substance: DEXTROSE
     Indication: TYPE 2 DIABETES MELLITUS
     Route: 042
     Dates: start: 20160204
  83. LEVOTHYROXINE SODIUM. [Concomitant]
     Active Substance: LEVOTHYROXINE SODIUM
     Indication: PROPHYLAXIS
     Route: 050
     Dates: start: 1995
  84. LEVOTHYROXINE SODIUM. [Concomitant]
     Active Substance: LEVOTHYROXINE SODIUM
     Indication: PROPHYLAXIS
     Route: 050
     Dates: start: 1995
  85. LOSARTAN. [Concomitant]
     Active Substance: LOSARTAN
     Indication: HYPERTENSION
     Route: 048
     Dates: start: 2010
  86. VELCADE [Suspect]
     Active Substance: BORTEZOMIB
     Indication: PLASMA CELL MYELOMA
     Dosage: DOSAGE FORM: LYOPHILIZED POWDER, CYCLE 3 DAY 1 LABEL IDENTIFIER V14464-03
     Route: 058
     Dates: start: 20160229, end: 20160229
  87. VELCADE [Suspect]
     Active Substance: BORTEZOMIB
     Indication: PLASMA CELL MYELOMA
     Dosage: DOSAGE FORM: LYOPHILIZED POWDER, CYCLE 01 DAY 29. LABEL IDENTIFIERS: 14463-07
     Route: 058
     Dates: start: 20151130, end: 20151130
  88. VELCADE [Suspect]
     Active Substance: BORTEZOMIB
     Indication: PLASMA CELL MYELOMA
     Dosage: DOSAGE FORM: LYOPHILIZED POWDER, CYCLE 01 DAY 4. LABEL IDENTIFIERS: 14463-02
     Route: 058
     Dates: start: 20151105, end: 20151105
  89. ACICLOVIR [Concomitant]
     Active Substance: ACYCLOVIR
     Indication: SEPSIS
     Route: 042
     Dates: start: 20160204, end: 20160212
  90. ACICLOVIR [Concomitant]
     Active Substance: ACYCLOVIR
     Indication: ACUTE CORONARY SYNDROME
     Route: 042
     Dates: start: 20151205, end: 20151216
  91. AMOXICILLIN. [Concomitant]
     Active Substance: AMOXICILLIN
     Indication: UPPER RESPIRATORY TRACT INFECTION
     Route: 048
     Dates: start: 20151204, end: 20151204
  92. ATORVASTATIN [Concomitant]
     Active Substance: ATORVASTATIN
     Indication: HYPERCHOLESTEROLAEMIA
     Route: 048
     Dates: start: 2005, end: 20151207
  93. ATROVENT [Concomitant]
     Active Substance: IPRATROPIUM BROMIDE
     Indication: CHRONIC OBSTRUCTIVE PULMONARY DISEASE
     Dosage: DOSAGE FORM: INHALATION
  94. FOLIC ACID. [Concomitant]
     Active Substance: FOLIC ACID
     Indication: PROPHYLAXIS
     Route: 048
     Dates: start: 20160129
  95. MEROPENEM. [Concomitant]
     Active Substance: MEROPENEM
     Indication: SEPSIS
     Route: 042
     Dates: start: 20160205, end: 20160208
  96. OMEPRAZOLE. [Concomitant]
     Active Substance: OMEPRAZOLE
     Indication: ANTACID THERAPY
     Route: 048
     Dates: start: 2011
  97. ONDANSETRON [Concomitant]
     Active Substance: ONDANSETRON
     Indication: PROPHYLAXIS
     Route: 042
     Dates: start: 20151206, end: 20151210
  98. OXYCONTIN [Concomitant]
     Active Substance: OXYCODONE HYDROCHLORIDE
     Indication: NEUROPATHY PERIPHERAL
     Route: 048
     Dates: start: 20160129
  99. POTASSIUM PHOSPHATE [Concomitant]
     Active Substance: POTASSIUM PHOSPHATE
     Indication: DEHYDRATION
     Route: 042
     Dates: start: 20160204
  100. REMIFENTANIL [Concomitant]
     Active Substance: REMIFENTANIL
     Indication: PAIN IN EXTREMITY
     Route: 042
     Dates: start: 20160208
  101. SENNA [Concomitant]
     Active Substance: SENNA LEAF\SENNOSIDES\SENNOSIDES A AND B
     Indication: CONSTIPATION
     Route: 048
     Dates: start: 20151204
  102. TAZOCIN [Concomitant]
     Active Substance: PIPERACILLIN SODIUM\TAZOBACTAM SODIUM
     Indication: LOWER RESPIRATORY TRACT INFECTION
     Route: 048
     Dates: start: 20151203, end: 20151210
  103. ZOMETA [Concomitant]
     Active Substance: ZOLEDRONIC ACID
     Indication: PLASMA CELL MYELOMA
     Route: 042
     Dates: start: 20160131
  104. VELCADE [Suspect]
     Active Substance: BORTEZOMIB
     Indication: PLASMA CELL MYELOMA
     Dosage: DOSAGE FORM: LYOPHILIZED POWDER, CYCLE 3 DAY 1 LABEL IDENTIFIER V14464-03
     Route: 058
     Dates: start: 20160208, end: 20160208
  105. AMIKACIN [Concomitant]
     Active Substance: AMIKACIN
     Indication: SEPSIS
     Route: 042
     Dates: start: 20160205, end: 20160208
  106. ATORVASTATIN [Concomitant]
     Active Substance: ATORVASTATIN
     Indication: PROPHYLAXIS
     Route: 048
     Dates: start: 20160205
  107. AUGMENTIN [Concomitant]
     Active Substance: AMOXICILLIN\CLAVULANATE POTASSIUM
     Indication: PROPHYLAXIS
     Dosage: DOSAGE FORM: UNSPECIFIED
     Route: 065
     Dates: start: 20151205, end: 20151210
  108. CARBOCISTEINE [Concomitant]
     Active Substance: CARBOCYSTEINE
     Indication: COUGH
     Route: 050
     Dates: start: 20160207, end: 20160405
  109. CIPROFLOXACIN. [Concomitant]
     Active Substance: CIPROFLOXACIN
     Indication: INFECTION PROPHYLAXIS
     Route: 048
     Dates: start: 20151113
  110. CODEINE [Concomitant]
     Active Substance: CODEINE
     Indication: LOWER RESPIRATORY TRACT INFECTION
     Route: 048
     Dates: start: 20151216, end: 20151230
  111. GLUCOSE [Concomitant]
     Active Substance: DEXTROSE
     Indication: TYPE 2 DIABETES MELLITUS
     Route: 042
  112. HYDROXOCOBALAMIN [Concomitant]
     Active Substance: HYDROXOCOBALAMIN
     Indication: MACROCYTOSIS
     Route: 042
     Dates: start: 20160201, end: 20160201
  113. OMEPRAZOLE. [Concomitant]
     Active Substance: OMEPRAZOLE
     Indication: GASTROOESOPHAGEAL REFLUX DISEASE
     Route: 048
     Dates: start: 2011
  114. OSELTAMIVIR [Concomitant]
     Active Substance: OSELTAMIVIR
     Indication: SEPSIS
     Route: 048
     Dates: start: 20160204, end: 20160215
  115. VITAMIN B COMPLEX [Concomitant]
     Active Substance: CYANOCOBALAMIN\DEXPANTHENOL\NIACINAMIDE\PYRIDOXINE HYDROCHLORIDE\RIBOFLAVIN 5^-PHOSPHATE SODIUM\THIAMINE HYDROCHLORIDE\VITAMIN B COMPLEX
     Indication: NEUROPATHY PERIPHERAL
     Route: 048
     Dates: start: 20160129
  116. VITAMIN B COMPLEX [Concomitant]
     Active Substance: CYANOCOBALAMIN\DEXPANTHENOL\NIACINAMIDE\PYRIDOXINE HYDROCHLORIDE\RIBOFLAVIN 5^-PHOSPHATE SODIUM\THIAMINE HYDROCHLORIDE\VITAMIN B COMPLEX
     Indication: PROPHYLAXIS
     Route: 048
     Dates: start: 20160129
  117. DARATUMUMAB [Suspect]
     Active Substance: DARATUMUMAB
     Indication: PLASMA CELL MYELOMA
     Route: 042
     Dates: start: 20151102, end: 20160201
  118. ACICLOVIR [Concomitant]
     Active Substance: ACYCLOVIR
     Indication: PROPHYLAXIS
     Route: 042
     Dates: start: 20160204, end: 20160212
  119. ALLOPURINOL. [Concomitant]
     Active Substance: ALLOPURINOL
     Indication: PROPHYLAXIS
     Route: 048
     Dates: start: 20151205
  120. AUGMENTIN [Concomitant]
     Active Substance: AMOXICILLIN\CLAVULANATE POTASSIUM
     Indication: LOWER RESPIRATORY TRACT INFECTION
     Route: 048
     Dates: start: 20151205, end: 20151210
  121. CLARITHROMYCIN. [Concomitant]
     Active Substance: CLARITHROMYCIN
     Indication: SEPSIS
     Route: 048
     Dates: start: 20160204, end: 20160208
  122. CLARITHROMYCIN. [Concomitant]
     Active Substance: CLARITHROMYCIN
     Indication: UPPER RESPIRATORY TRACT INFECTION
     Route: 048
     Dates: start: 20151204, end: 20151210
  123. CLONIDINE. [Concomitant]
     Active Substance: CLONIDINE
     Indication: HYPERTENSION
     Route: 042
     Dates: start: 20160209
  124. CO-AMOXICLAV [Concomitant]
     Active Substance: AMOXICILLIN\CLAVULANIC ACID
     Indication: PROPHYLAXIS
     Route: 048
     Dates: start: 20151205, end: 20151212
  125. CYCLIZINE [Concomitant]
     Active Substance: CYCLIZINE
     Indication: NAUSEA
     Route: 042
     Dates: start: 20151206, end: 20151210
  126. DOXYCYCLINE. [Concomitant]
     Active Substance: DOXYCYCLINE
     Indication: UPPER RESPIRATORY TRACT INFECTION
     Route: 048
     Dates: start: 2011
  127. HYDROCORTISONE. [Concomitant]
     Active Substance: HYDROCORTISONE
     Indication: ECZEMA
     Route: 042
     Dates: start: 20160205, end: 20160211
  128. INSULIN [Concomitant]
     Active Substance: INSULIN NOS
     Indication: TYPE 2 DIABETES MELLITUS
     Route: 042
     Dates: start: 20160204
  129. LEVOTHYROXINE SODIUM. [Concomitant]
     Active Substance: LEVOTHYROXINE SODIUM
     Indication: HYPOTHYROIDISM
     Route: 050
     Dates: start: 1995
  130. MAGNESIUM [Concomitant]
     Active Substance: MAGNESIUM
     Indication: HYPOMAGNESAEMIA
     Route: 048
     Dates: start: 20151205, end: 20151216
  131. OMEPRAZOLE. [Concomitant]
     Active Substance: OMEPRAZOLE
     Indication: GASTROOESOPHAGEAL REFLUX DISEASE
     Route: 048
     Dates: start: 2011
  132. OXYNORM [Concomitant]
     Active Substance: OXYCODONE HYDROCHLORIDE
     Indication: NEUROPATHY PERIPHERAL
     Route: 048
     Dates: start: 20160129
  133. PARACETAMOL [Concomitant]
     Active Substance: ACETAMINOPHEN
     Indication: BACK PAIN
     Route: 048
     Dates: start: 20151204
  134. PREDNISOLONE. [Concomitant]
     Active Substance: PREDNISOLONE
     Indication: UPPER RESPIRATORY TRACT INFECTION
     Route: 048
     Dates: start: 2011

REACTIONS (14)
  - Upper respiratory tract infection [Unknown]
  - Sepsis [Recovered/Resolved]
  - Abdominal pain [Unknown]
  - Atrial fibrillation [Recovered/Resolved]
  - Constipation [Unknown]
  - Chronic obstructive pulmonary disease [Unknown]
  - Neutropenia [Unknown]
  - Spinal column stenosis [Unknown]
  - Lower respiratory tract infection [Recovered/Resolved]
  - Peripheral swelling [Unknown]
  - Acute coronary syndrome [Recovered/Resolved]
  - Back pain [Unknown]
  - Acute kidney injury [Unknown]
  - Neuropathy peripheral [Unknown]

NARRATIVE: CASE EVENT DATE: 20151112
